FAERS Safety Report 7538349-6 (Version None)
Quarter: 2011Q2

REPORT INFORMATION
  Report Type: 
  Country: None (occurrence: None)
  Receive Date: 20110609
  Receipt Date: 20110531
  Transmission Date: 20111010
  Serious: Yes (Death)
  Sender: FDA-Public Use
  Company Number: DE-PFIZER INC-2011106566

PATIENT
  Age: 16 Year
  Sex: Female
  Weight: 85 kg

DRUGS (1)
  1. SOMATROPIN RDNA [Suspect]
     Indication: HYPOPITUITARISM
     Dosage: 1.0 MG, 1X/DAY
     Dates: start: 19970730

REACTIONS (3)
  - SOMNOLENCE [None]
  - CONVULSION [None]
  - DYSPNOEA [None]
